FAERS Safety Report 7259425-1 (Version None)
Quarter: 2011Q1

REPORT INFORMATION
  Report Type: 
  Country: None (occurrence: None)
  Receive Date: 20110129
  Receipt Date: 20100823
  Transmission Date: 20110831
  Serious: No
  Sender: FDA-Public Use
  Company Number: US-ABBOTT-10P-163-0666376-00

PATIENT
  Sex: Female
  Weight: 87.168 kg

DRUGS (6)
  1. HUMIRA [Suspect]
     Indication: RHEUMATOID ARTHRITIS
     Route: 058
  2. METHOTREXATE [Concomitant]
     Indication: RHEUMATOID ARTHRITIS
     Route: 048
  3. HUMIRA [Suspect]
     Route: 058
  4. HUMIRA [Suspect]
     Route: 058
  5. AVANDIA [Concomitant]
     Indication: DIABETES MELLITUS
  6. HIGAAS [Concomitant]
     Indication: HYPERTENSION
     Dosage: AS SPELLED BY THE PATIENT.

REACTIONS (3)
  - JOINT SWELLING [None]
  - ABASIA [None]
  - OEDEMA PERIPHERAL [None]
